FAERS Safety Report 10012225 (Version 2)
Quarter: 2014Q2

REPORT INFORMATION
  Report Type: Spontaneous
  Country: FR (occurrence: FR)
  Receive Date: 20140314
  Receipt Date: 20140414
  Transmission Date: 20141212
  Serious: Yes (Other)
  Sender: FDA-Public Use
  Company Number: FR-ABBVIE-14P-056-1209934-00

PATIENT
  Sex: Female
  Weight: 50 kg

DRUGS (3)
  1. HUMIRA [Suspect]
     Indication: CROHN^S DISEASE
     Dates: start: 2010
  2. HUMIRA [Suspect]
     Dates: start: 201402
  3. SOLUPRED [Concomitant]
     Indication: CROHN^S DISEASE

REACTIONS (4)
  - Intestinal obstruction [Recovered/Resolved]
  - Haematuria [Unknown]
  - Urinary tract infection [Unknown]
  - Crohn^s disease [Unknown]
